FAERS Safety Report 11033655 (Version 4)
Quarter: 2015Q3

REPORT INFORMATION
  Report Type: Spontaneous
  Country: US (occurrence: US)
  Receive Date: 20150415
  Receipt Date: 20150901
  Transmission Date: 20151125
  Serious: Yes (Hospitalization, Other)
  Sender: FDA-Public Use
  Company Number: US-JNJFOC-20150211613

PATIENT
  Age: 65 Year
  Sex: Male
  Weight: 94 kg

DRUGS (17)
  1. XARELTO [Suspect]
     Active Substance: RIVAROXABAN
     Indication: AORTIC STENOSIS
     Route: 048
     Dates: start: 20140422, end: 201405
  2. BYETTA [Concomitant]
     Active Substance: EXENATIDE
     Route: 065
  3. LANTUS SOLOSTAR [Concomitant]
     Active Substance: INSULIN GLARGINE
     Route: 065
  4. SEROQUEL [Concomitant]
     Active Substance: QUETIAPINE FUMARATE
     Route: 065
  5. DIGOXIN. [Concomitant]
     Active Substance: DIGOXIN
     Route: 065
  6. GLIMEPIRIDE. [Concomitant]
     Active Substance: GLIMEPIRIDE
     Route: 065
  7. ZOLOFT [Concomitant]
     Active Substance: SERTRALINE HYDROCHLORIDE
     Route: 065
  8. XARELTO [Suspect]
     Active Substance: RIVAROXABAN
     Indication: ATRIAL FIBRILLATION
     Route: 048
     Dates: start: 20140422, end: 201405
  9. TOPROL XL [Concomitant]
     Active Substance: METOPROLOL SUCCINATE
     Route: 065
  10. XARELTO [Suspect]
     Active Substance: RIVAROXABAN
     Indication: CEREBROVASCULAR ACCIDENT PROPHYLAXIS
     Route: 048
     Dates: start: 20140422, end: 201405
  11. PRAVASTATIN SODIUM. [Concomitant]
     Active Substance: PRAVASTATIN SODIUM
     Route: 065
  12. ROPINIROLE. [Concomitant]
     Active Substance: ROPINIROLE
     Route: 065
  13. AMIODARONE HCL [Concomitant]
     Active Substance: AMIODARONE HYDROCHLORIDE
     Route: 065
  14. FISH OIL [Concomitant]
     Active Substance: FISH OIL
     Route: 065
  15. ZESTRIL [Concomitant]
     Active Substance: LISINOPRIL
     Route: 065
  16. PLAVIX [Suspect]
     Active Substance: CLOPIDOGREL BISULFATE
     Indication: CARDIAC DISORDER
     Route: 048
  17. NITROGLYCERIN. [Concomitant]
     Active Substance: NITROGLYCERIN
     Route: 060

REACTIONS (2)
  - Internal haemorrhage [Unknown]
  - Haemorrhagic anaemia [Unknown]

NARRATIVE: CASE EVENT DATE: 201405
